FAERS Safety Report 7790956-1 (Version None)
Quarter: 2011Q3

REPORT INFORMATION
  Report Type: 
  Country: None (occurrence: None)
  Receive Date: 20110930
  Receipt Date: 20110930
  Transmission Date: 20111222
  Serious: Yes (Other)
  Sender: FDA-Public Use
  Company Number: None

PATIENT
  Age: 65 Year
  Sex: Female
  Weight: 74.842 kg

DRUGS (1)
  1. CITALOPRAM HYDROBROMIDE [Suspect]
     Indication: DEPRESSION
     Dosage: 60MG
     Route: 048
     Dates: start: 20060914, end: 20110927

REACTIONS (10)
  - HYPOTENSION [None]
  - DEHYDRATION [None]
  - MUSCULAR WEAKNESS [None]
  - HEART RATE INCREASED [None]
  - BLOOD PRESSURE IMMEASURABLE [None]
  - SUPRAVENTRICULAR TACHYCARDIA [None]
  - PYREXIA [None]
  - DIARRHOEA [None]
  - VENTRICULAR EXTRASYSTOLES [None]
  - PULSE PRESSURE DECREASED [None]
